FAERS Safety Report 10263713 (Version 2)
Quarter: 2014Q3

REPORT INFORMATION
  Report Type: Spontaneous
  Country: DE (occurrence: DE)
  Receive Date: 20140627
  Receipt Date: 20140708
  Transmission Date: 20150326
  Serious: Yes (Hospitalization)
  Sender: FDA-Public Use
  Company Number: DE-AMGEN INC.-DEUSP2014047203

PATIENT
  Age: 27 Year
  Sex: Female

DRUGS (24)
  1. PREDNISONE. [Suspect]
     Active Substance: PREDNISONE
     Indication: HODGKIN^S DISEASE
     Dosage: UNK
     Route: 042
     Dates: start: 20140604, end: 20140606
  2. GLANDOMED [Concomitant]
     Dosage: UNK
  3. PREDNISOLON                        /00016201/ [Concomitant]
     Active Substance: PREDNISOLONE
     Dosage: 20 MG, UNK
  4. CALCIUM CARBONATE. [Concomitant]
     Active Substance: CALCIUM CARBONATE
     Dosage: UNK
  5. NEUPOGEN [Suspect]
     Active Substance: FILGRASTIM
     Indication: NEUTROPENIA
     Dosage: 5 UNK, 1X/D
     Route: 058
     Dates: start: 20140613, end: 20140617
  6. BLEOMYCIN [Suspect]
     Active Substance: BLEOMYCIN SULFATE
     Indication: HODGKIN^S DISEASE
     Dosage: UNK
     Route: 042
     Dates: start: 20140604, end: 20140606
  7. ETOPOSIDE. [Suspect]
     Active Substance: ETOPOSIDE
     Indication: HODGKIN^S DISEASE
     Dosage: UNK
     Route: 042
     Dates: start: 20140604, end: 20140606
  8. PROCARBAZINE [Suspect]
     Active Substance: PROCARBAZINE
     Indication: HODGKIN^S DISEASE
     Dosage: UNK
     Route: 042
     Dates: start: 20140604, end: 20140606
  9. TAVANIC [Concomitant]
     Active Substance: LEVOFLOXACIN
     Dosage: 500 UNK, QD
  10. NEULASTA [Suspect]
     Active Substance: PEGFILGRASTIM
     Indication: NEUTROPENIA
     Dosage: 1 UNK, 1X/D
     Route: 058
     Dates: start: 20140607
  11. GRANISETRON [Concomitant]
     Active Substance: GRANISETRON
     Dosage: 2 MG, AS NECESSARY
  12. ADRIAMYCIN [Suspect]
     Active Substance: DOXORUBICIN HYDROCHLORIDE
     Indication: HODGKIN^S DISEASE
     Dosage: UNK
     Route: 042
     Dates: start: 20140604, end: 20140606
  13. ONCOVIN [Suspect]
     Active Substance: VINCRISTINE SULFATE
     Indication: HODGKIN^S DISEASE
     Dosage: UNK
     Route: 042
     Dates: start: 20140604, end: 20140606
  14. FLUCONAZOLE. [Concomitant]
     Active Substance: FLUCONAZOLE
     Dosage: 200 MG, QD
  15. L-THYROXIN [Concomitant]
     Active Substance: LEVOTHYROXINE SODIUM
     Dosage: 175 UNK
  16. CYCLOPHOSPHAMIDE. [Suspect]
     Active Substance: CYCLOPHOSPHAMIDE
     Indication: HODGKIN^S DISEASE
     Dosage: UNK
     Route: 042
     Dates: start: 20140604, end: 20140606
  17. NOVALGIN [Concomitant]
     Active Substance: METAMIZOLE SODIUM
     Dosage: 20 DROPS AS REQUIRED
  18. COTRIM [Concomitant]
     Active Substance: SULFAMETHOXAZOLE\TRIMETHOPRIM
     Dosage: 960 UNK
  19. EMEND [Concomitant]
     Active Substance: APREPITANT
     Dosage: 125 MG, QD
  20. FOLIC ACID. [Concomitant]
     Active Substance: FOLIC ACID
     Dosage: 5 MG, QD
  21. MCP                                /00041901/ [Concomitant]
     Indication: NAUSEA
     Dosage: 10 MG, 30 MINUTES BEFORE MEALS
  22. NATULAN [Concomitant]
     Active Substance: PROCARBAZINE HYDROCHLORIDE
     Dosage: 50 MG,
  23. ULCOGANT [Concomitant]
     Active Substance: SUCRALFATE
     Dosage: UNK UNK, QD
  24. BICANORM [Concomitant]
     Active Substance: SODIUM BICARBONATE

REACTIONS (9)
  - Hydronephrosis [Unknown]
  - Drug ineffective [Recovered/Resolved]
  - Diarrhoea [Unknown]
  - White blood cell count abnormal [Recovered/Resolved]
  - Neutropenia [Recovered/Resolved]
  - Nausea [Unknown]
  - Vomiting [Unknown]
  - Anaemia [Unknown]
  - Hypothyroidism [Unknown]

NARRATIVE: CASE EVENT DATE: 20140610
